FAERS Safety Report 10042787 (Version 3)
Quarter: 2014Q2

REPORT INFORMATION
  Report Type: Spontaneous
  Country: US (occurrence: US)
  Receive Date: 20140327
  Receipt Date: 20140411
  Transmission Date: 20141212
  Serious: Yes (Hospitalization, Other)
  Sender: FDA-Public Use
  Company Number: CHPA2014US004407

PATIENT
  Age: 69 Year
  Sex: Male

DRUGS (9)
  1. BUCKLEY^S COUGH MIXTURE [Suspect]
     Indication: COUGH
     Dosage: 0.5 TSP, PRN
     Route: 048
     Dates: end: 20140316
  2. BUCKLEY^S COUGH MIXTURE [Suspect]
     Indication: SECRETION DISCHARGE
  3. BUCKLEY^S COUGH MIXTURE [Suspect]
     Indication: OFF LABEL USE
  4. C-VITAMIN [Concomitant]
     Dosage: 500 MG, QD
  5. DAILY MULTIVITAMIN [Concomitant]
  6. B COMPLEX [Concomitant]
     Dosage: 1 DF, QD
  7. GLUCOSAMINE + CHONDROITIN [Concomitant]
     Dosage: UNK, BID
  8. MAGNESIUM [Concomitant]
     Dosage: 400 MG, UNK
  9. CALCIUM [Concomitant]
     Dosage: 630 MG, BID

REACTIONS (9)
  - Myocardial infarction [Recovered/Resolved]
  - Cardiac failure congestive [Not Recovered/Not Resolved]
  - Atrial fibrillation [Not Recovered/Not Resolved]
  - Sleep apnoea syndrome [Not Recovered/Not Resolved]
  - Glucose tolerance impaired [Not Recovered/Not Resolved]
  - Bronchial irritation [Recovered/Resolved]
  - Feeling cold [Unknown]
  - Inappropriate schedule of drug administration [Unknown]
  - Therapeutic response changed [Unknown]
